FAERS Safety Report 4630922-8 (Version None)
Quarter: 2005Q2

REPORT INFORMATION
  Report Type: 
  Country: None (occurrence: None)
  Receive Date: 20050407
  Receipt Date: 20050407
  Transmission Date: 20051028
  Serious: Yes (Other)
  Sender: FDA-Public Use
  Company Number: None

PATIENT
  Age: 41 Year
  Sex: Male
  Weight: 89.3586 kg

DRUGS (1)
  1. DURAGESIC PATCH [Suspect]
     Indication: PAIN
     Dosage: 1 PATCH Q72
     Dates: start: 20050318

REACTIONS (6)
  - FATIGUE [None]
  - HEADACHE [None]
  - INADEQUATE ANALGESIA [None]
  - PHARMACEUTICAL PRODUCT COMPLAINT [None]
  - TREMOR [None]
  - VOMITING [None]
